FAERS Safety Report 10642727 (Version 1)
Quarter: 2014Q4

REPORT INFORMATION
  Report Type: Spontaneous
  Country: US (occurrence: None)
  Receive Date: 20141209
  Receipt Date: 20141209
  Transmission Date: 20150529
  Serious: Yes (Other)
  Sender: FDA-Public Use
  Company Number: None

PATIENT
  Age: 20 Year
  Sex: Male
  Weight: 46 kg

DRUGS (1)
  1. LIPOSOMAL AMPHOTERICIN [Suspect]
     Active Substance: AMPHOTERICIN B
     Indication: FUNGAL INFECTION
     Dosage: 345 MG IV INFUSION
     Route: 042
     Dates: start: 20140313, end: 20140422

REACTIONS (11)
  - Blood pressure increased [None]
  - Back pain [None]
  - Hypoxia [None]
  - Dyspnoea [None]
  - Pallor [None]
  - Lethargy [None]
  - Hyperhidrosis [None]
  - Tachycardia [None]
  - Chest pain [None]
  - Feeling hot [None]
  - Infusion related reaction [None]

NARRATIVE: CASE EVENT DATE: 20140311
